FAERS Safety Report 8001039-X (Version None)
Quarter: 2011Q4

REPORT INFORMATION
  Report Type: 
  Country: None (occurrence: None)
  Receive Date: 20111222
  Receipt Date: 20110725
  Transmission Date: 20120403
  Serious: No
  Sender: FDA-Public Use
  Company Number: US-GLAXOSMITHKLINE-A0939327A

PATIENT
  Age: 61 Year
  Sex: Female

DRUGS (18)
  1. LORAZEPAM [Concomitant]
  2. NUVIGIL [Concomitant]
  3. PANTOPRAZOLE [Concomitant]
  4. TRICOR [Concomitant]
  5. GLIMEPIRIDE [Concomitant]
  6. MAGNESIUM [Concomitant]
  7. LYRICA [Concomitant]
  8. ASPIRIN [Concomitant]
  9. VYTORIN [Concomitant]
  10. AMPYRA [Suspect]
     Indication: GAIT DISTURBANCE
     Dosage: 10MG TWICE PER DAY
     Route: 048
     Dates: start: 20110701
  11. MELOXICAM [Concomitant]
  12. OXYCODONE HCL [Concomitant]
  13. CYCLOBENZAPRINE [Concomitant]
  14. CLONAZEPAM [Concomitant]
  15. PROMETHAZINE [Concomitant]
  16. FLUTICASONE FUROATE [Suspect]
     Indication: PRODUCT USED FOR UNKNOWN INDICATION
     Route: 065
  17. SUMATRIPTAN [Concomitant]
  18. AMBIEN [Concomitant]

REACTIONS (4)
  - INSOMNIA [None]
  - INAPPROPRIATE SCHEDULE OF DRUG ADMINISTRATION [None]
  - HEADACHE [None]
  - HYPERSENSITIVITY [None]
